FAERS Safety Report 4654873-8 (Version None)
Quarter: 2005Q2

REPORT INFORMATION
  Report Type: 
  Country: None (occurrence: None)
  Receive Date: 20050506
  Receipt Date: 20041109
  Transmission Date: 20051028
  Serious: Yes (Death, Hospitalization, Disabling)
  Sender: FDA-Public Use
  Company Number: CM-MERCK-0411USA01761

PATIENT
  Age: 6 Year
  Sex: Male
  Weight: 23 kg

DRUGS (1)
  1. STROMECTOL [Suspect]
     Route: 048
     Dates: start: 20041104, end: 20041104

REACTIONS (11)
  - ABNORMAL BEHAVIOUR [None]
  - AGITATION [None]
  - ASTHENIA [None]
  - CARDIO-RESPIRATORY ARREST [None]
  - CEREBRAL DISORDER [None]
  - ENCEPHALOPATHY [None]
  - HEPATITIS FULMINANT [None]
  - HEPATOMEGALY [None]
  - IRRITABILITY [None]
  - OCULAR ICTERUS [None]
  - VOMITING [None]
